FAERS Safety Report 20135954 (Version 1)
Quarter: 2021Q4

REPORT INFORMATION
  Report Type: Spontaneous
  Country: CA (occurrence: CA)
  Receive Date: 20211201
  Receipt Date: 20211201
  Transmission Date: 20220303
  Serious: Yes (Other)
  Sender: FDA-Public Use
  Company Number: CA-PFIZER INC-202101654858

PATIENT
  Age: 60 Year
  Sex: Male

DRUGS (3)
  1. XELJANZ [Suspect]
     Active Substance: TOFACITINIB CITRATE
     Indication: Rheumatoid arthritis
     Dosage: 5 MG, 2X/DAY, ON HOLD
     Route: 048
     Dates: start: 20161114, end: 20191216
  2. METHOTREXATE SODIUM [Suspect]
     Active Substance: METHOTREXATE SODIUM
     Dosage: 20 MG, WEEKLY
     Route: 030
     Dates: start: 200806
  3. NAPROXEN [Concomitant]
     Active Substance: NAPROXEN
     Dosage: 1000 MG, FREQUENCY:  NOT PROVIDED
     Route: 065

REACTIONS (1)
  - Humerus fracture [Not Recovered/Not Resolved]

NARRATIVE: CASE EVENT DATE: 20210501
